FAERS Safety Report 16898789 (Version 1)
Quarter: 2019Q4

REPORT INFORMATION
  Report Type: Spontaneous
  Country: US (occurrence: US)
  Receive Date: 20190815
  Receipt Date: 20190815
  Transmission Date: 20200122
  Serious: Yes (Other)
  Sender: FDA-Public Use
  Company Number: None

PATIENT
  Age: 70 Year
  Sex: Female

DRUGS (1)
  1. IBRANCE [Suspect]
     Active Substance: PALBOCICLIB
     Route: 011
     Dates: start: 201905

REACTIONS (2)
  - Full blood count decreased [None]
  - Platelet count decreased [None]

NARRATIVE: CASE EVENT DATE: 20190815
